FAERS Safety Report 24271828 (Version 1)
Quarter: 2024Q3

REPORT INFORMATION
  Report Type: Spontaneous
  Country: US (occurrence: US)
  Receive Date: 20240902
  Receipt Date: 20240902
  Transmission Date: 20241017
  Serious: Yes (Other)
  Sender: NOVO NORDISK
  Company Number: US-NOVOPROD-1274564

PATIENT
  Age: 55 Year
  Sex: Male

DRUGS (3)
  1. FIASP [Suspect]
     Active Substance: INSULIN ASPART
     Indication: Type 2 diabetes mellitus
     Dosage: 8 IU  (BEFORE MEAL)
     Route: 058
     Dates: start: 2018, end: 2022
  2. TRESIBA [Suspect]
     Active Substance: INSULIN DEGLUDEC
     Indication: Type 2 diabetes mellitus
     Dosage: 82 IU, BID
     Route: 058
     Dates: start: 2018, end: 2022
  3. HUMULIN R [Concomitant]
     Active Substance: INSULIN HUMAN
     Indication: Type 2 diabetes mellitus
     Dosage: 195 IU, QD

REACTIONS (2)
  - Cerebrovascular accident [Recovered/Resolved]
  - Glycosylated haemoglobin increased [Recovered/Resolved]
